FAERS Safety Report 17726942 (Version 1)
Quarter: 2020Q2

REPORT INFORMATION
  Report Type: Spontaneous
  Country: US (occurrence: US)
  Receive Date: 20200430
  Receipt Date: 20200430
  Transmission Date: 20200714
  Serious: Yes (Death)
  Sender: FDA-Public Use
  Company Number: US-ROCHE-2590748

PATIENT
  Sex: Male

DRUGS (7)
  1. RITUXAN [Suspect]
     Active Substance: RITUXIMAB
     Indication: PRODUCT USED FOR UNKNOWN INDICATION
     Dosage: 1, 8, 15 AND 22 DAY.
     Route: 041
  2. COUMARIN [Concomitant]
     Active Substance: COUMARIN
  3. MEPERIDINE [PETHIDINE] [Concomitant]
     Active Substance: MEPERIDINE
  4. PREDNISONE. [Concomitant]
     Active Substance: PREDNISONE
  5. LUPRON [Concomitant]
     Active Substance: LEUPROLIDE ACETATE
  6. XTANDI [Concomitant]
     Active Substance: ENZALUTAMIDE
  7. XGEVA [Concomitant]
     Active Substance: DENOSUMAB

REACTIONS (1)
  - Death [Fatal]
